FAERS Safety Report 12840365 (Version 1)
Quarter: 2016Q4

REPORT INFORMATION
  Report Type: Spontaneous
  Country: US (occurrence: US)
  Receive Date: 20161012
  Receipt Date: 20161012
  Transmission Date: 20170207
  Serious: No
  Sender: FDA-Public Use
  Company Number: US-CELGENEUS-USA-2016101848

PATIENT
  Age: 75 Year
  Sex: Female

DRUGS (2)
  1. POMALYST [Suspect]
     Active Substance: POMALIDOMIDE
     Indication: PLASMA CELL MYELOMA
     Route: 048
     Dates: start: 201511
  2. POMALYST [Suspect]
     Active Substance: POMALIDOMIDE
     Route: 048
     Dates: start: 20160714

REACTIONS (1)
  - Adverse drug reaction [Recovered/Resolved]

NARRATIVE: CASE EVENT DATE: 20160926
